FAERS Safety Report 5004490-5 (Version None)
Quarter: 2006Q2

REPORT INFORMATION
  Report Type: 
  Country: None (occurrence: None)
  Receive Date: 20060516
  Receipt Date: 20060516
  Transmission Date: 20061013
  Serious: Yes (Life-Threatening)
  Sender: FDA-Public Use
  Company Number: None

PATIENT
  Age: 67 Year
  Sex: Male
  Weight: 82.3 kg

DRUGS (1)
  1. CETUXIMAB (BMS)  2MG/1ML [Suspect]
     Indication: OESOPHAGEAL CARCINOMA
     Dosage: SEE IMAGE
     Dates: start: 20060510

REACTIONS (11)
  - BRADYCARDIA [None]
  - CHEST DISCOMFORT [None]
  - DRUG HYPERSENSITIVITY [None]
  - DYSPNOEA [None]
  - ERYTHEMA [None]
  - HYPERHIDROSIS [None]
  - HYPOTENSION [None]
  - HYPOXIA [None]
  - INFUSION RELATED REACTION [None]
  - POLYURIA [None]
  - PRURITUS [None]
